FAERS Safety Report 21089630 (Version 1)
Quarter: 2022Q3

REPORT INFORMATION
  Report Type: Spontaneous
  Country: US (occurrence: US)
  Receive Date: 20220715
  Receipt Date: 20220715
  Transmission Date: 20221027
  Serious: No
  Sender: FDA-Public Use
  Company Number: CID000000000025724

PATIENT
  Age: 71 Year
  Sex: Male
  Weight: 53.07 kg

DRUGS (2)
  1. PROAIR HFA [Suspect]
     Active Substance: ALBUTEROL SULFATE
     Indication: Chronic obstructive pulmonary disease
     Dosage: 12960 MILLIGRAM DAILY; 2 PUFFS EVERY 6 HOURS
     Route: 065
  2. ALBUTEROL [Suspect]
     Active Substance: ALBUTEROL
     Indication: Product used for unknown indication
     Route: 065

REACTIONS (5)
  - Muscular weakness [Not Recovered/Not Resolved]
  - Product use in unapproved indication [Unknown]
  - Glucose tolerance impaired [Unknown]
  - Weight decreased [Recovered/Resolved]
  - Contraindicated product administered [Unknown]
